FAERS Safety Report 5265426-5 (Version None)
Quarter: 2007Q1

REPORT INFORMATION
  Report Type: 
  Country: None (occurrence: None)
  Receive Date: 20070314
  Receipt Date: 20070305
  Transmission Date: 20070707
  Serious: Yes (Other)
  Sender: FDA-Public Use
  Company Number: US-PFIZER INC-2007007401

PATIENT
  Sex: Female

DRUGS (7)
  1. CHANTIX [Suspect]
     Indication: EX-SMOKER
  2. AMBIEN [Concomitant]
  3. SYNTHROID [Concomitant]
     Route: 048
  4. ZOCOR [Concomitant]
  5. TEVETEN [Concomitant]
  6. ZYRTEC [Concomitant]
  7. VALIUM [Concomitant]

REACTIONS (3)
  - ORAL MUCOSAL BLISTERING [None]
  - THROAT LESION [None]
  - TONGUE ERUPTION [None]
